FAERS Safety Report 9613521 (Version 6)
Quarter: 2014Q2

REPORT INFORMATION
  Report Type: Report from Study
  Country: JP (occurrence: JP)
  Receive Date: 20131010
  Receipt Date: 20140408
  Transmission Date: 20141212
  Serious: Yes (Hospitalization, Other)
  Sender: FDA-Public Use
  Company Number: JP-ABBVIE-13X-087-1111384-00

PATIENT
  Age: 76 Year
  Sex: Male

DRUGS (35)
  1. LIPACREON CAPSULES 150 MG [Suspect]
     Indication: PANCREATIC INSUFFICIENCY
     Route: 048
     Dates: start: 20121031, end: 20130809
  2. LIPACREON CAPSULES 150 MG [Suspect]
     Dates: start: 20130905, end: 20130918
  3. REBAMIPIDE [Concomitant]
     Indication: GASTROINTESTINAL DISORDER
     Route: 048
  4. REBAMIPIDE [Concomitant]
     Indication: PROPHYLAXIS
  5. REBAMIPIDE [Concomitant]
     Indication: PROPHYLAXIS
     Route: 048
     Dates: end: 20130809
  6. OXYCODONE HYDROCHLORIDE [Concomitant]
     Indication: CANCER PAIN
     Route: 048
     Dates: end: 20130108
  7. OXYCODONE HYDROCHLORIDE [Concomitant]
     Indication: CANCER PAIN
     Dates: start: 20130109, end: 20130122
  8. OXYCODONE HYDROCHLORIDE [Concomitant]
     Indication: CANCER PAIN
     Dates: start: 20130123, end: 20130205
  9. OXYCODONE HYDROCHLORIDE [Concomitant]
     Dates: start: 20130206
  10. OXYCODONE HYDROCHLORIDE [Concomitant]
     Route: 048
     Dates: end: 20130108
  11. OXYCODONE HYDROCHLORIDE [Concomitant]
     Dates: start: 20130109, end: 20130122
  12. OXYCODONE HYDROCHLORIDE [Concomitant]
     Dates: start: 20130123, end: 20130205
  13. OXYCODONE HYDROCHLORIDE [Concomitant]
     Dates: start: 20130206, end: 20130809
  14. MAGNESIUM OXIDE [Concomitant]
     Indication: PRODUCT USED FOR UNKNOWN INDICATION
     Route: 048
  15. MAGNESIUM OXIDE [Concomitant]
     Indication: CONSTIPATION
     Route: 048
     Dates: end: 20130809
  16. GIMERACIL W/OTERACIL POTASSIUM/TEGAFUR [Concomitant]
     Indication: PRODUCT USED FOR UNKNOWN INDICATION
     Route: 048
     Dates: start: 20130123, end: 20130219
  17. GIMERACIL W/OTERACIL POTASSIUM/TEGAFUR [Concomitant]
     Route: 048
     Dates: start: 20130220, end: 20130305
  18. GIMERACIL W/OTERACIL POTASSIUM/TEGAFUR [Concomitant]
     Dates: start: 20130310, end: 20130324
  19. ESOMEPRAZOLE MAGNESIUM [Concomitant]
     Indication: PANCREATIC INSUFFICIENCY
     Route: 048
     Dates: start: 20130213, end: 20130723
  20. ALUMINIUM HYDROXIDE W/MAGNESIUM HYDROXIDE [Concomitant]
     Indication: PANCREATIC INSUFFICIENCY
     Route: 048
     Dates: start: 20130213, end: 20130416
  21. HERBAL EXTRACT NOS [Concomitant]
     Indication: OEDEMA
     Route: 048
     Dates: start: 20130313, end: 20130430
  22. AMINO ACIDS [Concomitant]
     Indication: HYPOALBUMINAEMIA
     Route: 048
     Dates: start: 20130313
  23. AMINO ACIDS [Concomitant]
     Indication: HEPATIC CIRRHOSIS
  24. SENNA LEAF [Concomitant]
     Indication: PRODUCT USED FOR UNKNOWN INDICATION
     Route: 048
     Dates: end: 20130402
  25. LOXOPROFEN SODIUM [Concomitant]
     Indication: CANCER PAIN
     Route: 048
     Dates: end: 20130129
  26. LOXOPROFEN SODIUM [Concomitant]
     Indication: CANCER PAIN
     Dates: start: 20130130
  27. LOXOPROFEN SODIUM [Concomitant]
     Indication: CANCER PAIN
     Route: 048
     Dates: end: 20130129
  28. LOXOPROFEN SODIUM [Concomitant]
     Dates: start: 20130130, end: 20130809
  29. GEMCITABINE HYDROCHLORIDE [Concomitant]
     Indication: PRODUCT USED FOR UNKNOWN INDICATION
     Route: 050
     Dates: start: 20130306, end: 20130306
  30. GRANISETRON HYDROCHLORIDE [Concomitant]
     Indication: PRODUCT USED FOR UNKNOWN INDICATION
     Route: 050
     Dates: start: 20130306, end: 20130306
  31. DEXAMETHASONE SODIUM PHOSPHATE [Concomitant]
     Indication: PRODUCT USED FOR UNKNOWN INDICATION
     Route: 050
     Dates: start: 20130306, end: 20130306
  32. ISOLEUCINE W/LEUCINE/VALINE [Concomitant]
     Indication: HYPOALBUMINAEMIA
     Route: 048
     Dates: start: 20130313, end: 20130809
  33. FUROSEMIDE [Concomitant]
     Indication: PRODUCT USED FOR UNKNOWN INDICATION
     Route: 048
     Dates: start: 20130701, end: 20130809
  34. RABEPRAZOLE SODIUM [Concomitant]
     Indication: PANCREATIC INSUFFICIENCY
     Route: 048
     Dates: start: 20130724, end: 20130809
  35. SODIUM FERROUS CITRATE [Concomitant]
     Indication: PRODUCT USED FOR UNKNOWN INDICATION
     Route: 048
     Dates: start: 20130417, end: 20130809

REACTIONS (11)
  - Cancer pain [Not Recovered/Not Resolved]
  - Ileus [Recovered/Resolved]
  - Bile duct cancer [Not Recovered/Not Resolved]
  - Clavicle fracture [Recovered/Resolved]
  - Anaemia [Recovering/Resolving]
  - Oedema peripheral [Recovering/Resolving]
  - Hypoalbuminaemia [Not Recovered/Not Resolved]
  - Fall [Unknown]
  - Abdominal pain [Unknown]
  - Nausea [Unknown]
  - Vomiting [Unknown]
